FAERS Safety Report 21179799 (Version 2)
Quarter: 2022Q3

REPORT INFORMATION
  Report Type: Spontaneous
  Country: NO (occurrence: NO)
  Receive Date: 20220805
  Receipt Date: 20220811
  Transmission Date: 20221027
  Serious: Yes (Other)
  Sender: FDA-Public Use
  Company Number: NO-NOVARTISPH-NVSC2022NO174722

PATIENT
  Age: 62 Year
  Sex: Male

DRUGS (1)
  1. TAMSULOSIN [Suspect]
     Active Substance: TAMSULOSIN
     Indication: Product used for unknown indication
     Dosage: 0.4 MG, QD
     Route: 048

REACTIONS (3)
  - Foreign body in throat [Unknown]
  - Product use complaint [Unknown]
  - Treatment failure [Unknown]
